FAERS Safety Report 6501643-1 (Version None)
Quarter: 2009Q4

REPORT INFORMATION
  Report Type: 
  Country: None (occurrence: None)
  Receive Date: 20091216
  Receipt Date: 20091203
  Transmission Date: 20100525
  Serious: Yes (Other)
  Sender: FDA-Public Use
  Company Number: GB-ALLERGAN-0916804US

PATIENT
  Sex: Male

DRUGS (5)
  1. ACULAR [Suspect]
     Indication: DRUG USE FOR UNKNOWN INDICATION
     Dosage: 1 GTT, QD REDUCING DOSE
  2. CHLORAMPHENICOL [Suspect]
     Indication: DRUG USE FOR UNKNOWN INDICATION
  3. XALACOM [Suspect]
     Indication: DRUG USE FOR UNKNOWN INDICATION
     Dosage: UNK
     Dates: start: 20091113
  4. MAXIDEX [Suspect]
     Indication: DRUG USE FOR UNKNOWN INDICATION
  5. TRUSOPT [Concomitant]

REACTIONS (2)
  - DRUG INTERACTION [None]
  - VISION BLURRED [None]
